FAERS Safety Report 10770702 (Version 1)
Quarter: 2015Q1

REPORT INFORMATION
  Report Type: Spontaneous
  Country: US (occurrence: None)
  Receive Date: 20150206
  Receipt Date: 20150206
  Transmission Date: 20150721
  Serious: No
  Sender: FDA-Public Use
  Company Number: HYP201402-000014

PATIENT
  Age: 18 Year
  Sex: Male

DRUGS (8)
  1. VITAMIN A [Concomitant]
     Active Substance: VITAMIN A
  2. LAMICTAL [Concomitant]
     Active Substance: LAMOTRIGINE
  3. CALCIUM CARBONATE WITH VITAMIN D [Concomitant]
     Active Substance: CALCIUM CARBONATE\ERGOCALCIFEROL
  4. CARBATROL [Concomitant]
     Active Substance: CARBAMAZEPINE
  5. VITAMIN D [Concomitant]
     Active Substance: CHOLECALCIFEROL
  6. RAVICTI [Suspect]
     Active Substance: GLYCEROL PHENYLBUTYRATE
     Indication: UREA CYCLE ENZYME DEFICIENCY
     Route: 048
     Dates: start: 201401
  7. ARGININE [Concomitant]
     Active Substance: ARGININE
  8. KEPPRA [Concomitant]
     Active Substance: LEVETIRACETAM

REACTIONS (1)
  - Headache [None]

NARRATIVE: CASE EVENT DATE: 201401
